FAERS Safety Report 9745292 (Version 2)
Quarter: 2014Q2

REPORT INFORMATION
  Report Type: Report from Study
  Country: US (occurrence: US)
  Receive Date: 20131211
  Receipt Date: 20140416
  Transmission Date: 20141212
  Serious: Yes (Hospitalization)
  Sender: FDA-Public Use
  Company Number: US-VERTEX PHARMACEUTICALS INC-2013-011635

PATIENT
  Age: 16 Year
  Sex: Female

DRUGS (1)
  1. VX-770 [Suspect]
     Indication: CYSTIC FIBROSIS
     Dosage: UNK
     Route: 048
     Dates: start: 20120306

REACTIONS (4)
  - Lung infection [Recovered/Resolved]
  - Staphylococcus test positive [Recovered/Resolved]
  - Pyrexia [Unknown]
  - Fatigue [Unknown]
